FAERS Safety Report 4766309-7 (Version None)
Quarter: 2005Q3

REPORT INFORMATION
  Report Type: 
  Country: None (occurrence: None)
  Receive Date: 20050906
  Receipt Date: 20050823
  Transmission Date: 20060218
  Serious: Yes (Death, Other)
  Sender: FDA-Public Use
  Company Number: USA040670556

PATIENT
  Age: 81 Year
  Sex: Female
  Weight: 58 kg

DRUGS (9)
  1. FORTEO [Suspect]
     Indication: OSTEOPOROSIS
     Dosage: 20 UG DAY
     Dates: start: 20040614, end: 20041101
  2. ACTONEL [Concomitant]
  3. TRIAMTERENE AND HYDROCHLOROTHIAZIDE [Concomitant]
  4. ASACOL [Concomitant]
  5. NORVASC [Concomitant]
  6. DETROL LA [Concomitant]
  7. RANITIDINE [Concomitant]
  8. MULTI-VITAMIN [Concomitant]
  9. TUMS (CALCIUM CARBONATE) [Concomitant]

REACTIONS (8)
  - CARDIAC FAILURE [None]
  - DEMENTIA ALZHEIMER'S TYPE [None]
  - HAEMORRHAGE [None]
  - INJECTION SITE HAEMORRHAGE [None]
  - MEDICAL DEVICE COMPLICATION [None]
  - PHARMACEUTICAL PRODUCT COMPLAINT [None]
  - WEIGHT DECREASED [None]
  - WRONG TECHNIQUE IN DRUG USAGE PROCESS [None]
